FAERS Safety Report 25906422 (Version 2)
Quarter: 2025Q4

REPORT INFORMATION
  Report Type: Report from Study
  Country: CR (occurrence: CR)
  Receive Date: 20251010
  Receipt Date: 20251210
  Transmission Date: 20260118
  Serious: Yes (Life-Threatening, Hospitalization, Other)
  Sender: NOVARTIS
  Company Number: CR-002147023-NVSC2024CR042732

PATIENT
  Age: 46 Year
  Sex: Female
  Weight: 106 kg

DRUGS (3)
  1. MAYZENT [Suspect]
     Active Substance: SIPONIMOD
     Indication: Secondary progressive multiple sclerosis
     Dosage: 2 MG, QD
     Route: 048
     Dates: start: 20240219
  2. MAYZENT [Suspect]
     Active Substance: SIPONIMOD
     Indication: Multiple sclerosis
  3. CLADRIBINE [Suspect]
     Active Substance: CLADRIBINE
     Indication: Product used for unknown indication
     Dosage: UNK
     Route: 065

REACTIONS (30)
  - Platelet count decreased [Not Recovered/Not Resolved]
  - Multiple sclerosis [Unknown]
  - Kidney infection [Unknown]
  - Liver injury [Unknown]
  - Vaginal haemorrhage [Unknown]
  - Seizure [Unknown]
  - Contusion [Unknown]
  - Varicose vein [Unknown]
  - Amnesia [Unknown]
  - Ecchymosis [Unknown]
  - Pain [Not Recovered/Not Resolved]
  - Petechiae [Unknown]
  - Vomiting [Unknown]
  - Renal pain [Unknown]
  - Gait disturbance [Unknown]
  - Fatigue [Not Recovered/Not Resolved]
  - Cognitive disorder [Unknown]
  - Overweight [Unknown]
  - Bradykinesia [Unknown]
  - Stress [Unknown]
  - Decreased immune responsiveness [Unknown]
  - Weight increased [Unknown]
  - Asthenia [Unknown]
  - Weight decreased [Unknown]
  - Dizziness [Unknown]
  - Bradycardia [Unknown]
  - Oesophageal pain [Unknown]
  - Dyspepsia [Unknown]
  - Headache [Unknown]
  - Memory impairment [Unknown]

NARRATIVE: CASE EVENT DATE: 20240220
